FAERS Safety Report 26010900 (Version 1)
Quarter: 2025Q4

REPORT INFORMATION
  Report Type: Report from Study
  Country: CA (occurrence: CA)
  Receive Date: 20251107
  Receipt Date: 20251107
  Transmission Date: 20260117
  Serious: Yes (Life-Threatening, Hospitalization, Other)
  Sender: AMGEN
  Company Number: CA-AMGEN-CANSL2025217818

PATIENT
  Age: 74 Year
  Sex: Female

DRUGS (1)
  1. AVSOLA [Suspect]
     Active Substance: INFLIXIMAB-AXXQ
     Indication: Rheumatoid arthritis
     Dosage: 300 MILLIGRAM, Q8WK
     Route: 065

REACTIONS (2)
  - Post procedural complication [Unknown]
  - Shoulder operation [Unknown]

NARRATIVE: CASE EVENT DATE: 20250101
